FAERS Safety Report 7718521-2 (Version None)
Quarter: 2011Q3

REPORT INFORMATION
  Report Type: 
  Country: None (occurrence: None)
  Receive Date: 20110830
  Receipt Date: 20110822
  Transmission Date: 20111222
  Serious: Yes (Other)
  Sender: FDA-Public Use
  Company Number: US-GENZYME-CAMP-1001840

PATIENT
  Sex: Female
  Weight: 68.027 kg

DRUGS (4)
  1. CAMPATH [Suspect]
     Dosage: 24 MG, QD
     Route: 042
     Dates: start: 20090330, end: 20090403
  2. METHYLPREDNISOLONE [Concomitant]
     Indication: MULTIPLE SCLEROSIS
     Dosage: 1.0 G, QD
     Route: 042
     Dates: start: 20090330, end: 20090401
  3. METHYLPREDNISOLONE [Suspect]
     Dosage: 1.0 G, QD
     Route: 042
     Dates: start: 20100414, end: 20100416
  4. CAMPATH [Suspect]
     Indication: MULTIPLE SCLEROSIS
     Dosage: 24 MG, QD
     Route: 042
     Dates: start: 20100414, end: 20100416

REACTIONS (1)
  - BREAST CANCER [None]
